FAERS Safety Report 4528797-0 (Version None)
Quarter: 2004Q4

REPORT INFORMATION
  Report Type: 
  Country: None (occurrence: None)
  Receive Date: 20041214
  Receipt Date: 20041119
  Transmission Date: 20050328
  Serious: Yes (Hospitalization, Disabling, Other)
  Sender: FDA-Public Use
  Company Number: BRO-007728

PATIENT
  Age: 59 Year
  Sex: Female

DRUGS (5)
  1. IOPAMIDOL-300 [Suspect]
     Indication: ARTHROGRAM
     Dosage: 0.5 ML IR  A FEW SECS
     Dates: start: 20040804, end: 20040804
  2. XYLOCAINE HYDROCHLORIDE, (LIDOCAINE HYDROCHLORIDE) [Concomitant]
  3. HYDROCORTANCYL, (PREDNISOLONE) [Concomitant]
  4. MIGPRIV [Concomitant]
  5. ACETAMINOPHEN [Concomitant]

REACTIONS (14)
  - ACCIDENT [None]
  - BLOOD IMMUNOGLOBULIN M INCREASED [None]
  - BONE MARROW DISORDER [None]
  - DYSPNOEA [None]
  - HEMIPARESIS [None]
  - HEPATITIS [None]
  - HYPERSENSITIVITY [None]
  - LOCALISED OEDEMA [None]
  - MALAISE [None]
  - MYELITIS [None]
  - PAIN [None]
  - PROCEDURAL COMPLICATION [None]
  - SYNCOPE VASOVAGAL [None]
  - VOMITING [None]
